FAERS Safety Report 14264858 (Version 1)
Quarter: 2017Q4

REPORT INFORMATION
  Report Type: Spontaneous
  Country: GB (occurrence: GB)
  Receive Date: 20171208
  Receipt Date: 20171208
  Transmission Date: 20180321
  Serious: Yes (Other)
  Sender: FDA-Public Use
  Company Number: GB-SA-2017SA236726

PATIENT
  Age: 61 Year
  Sex: Female
  Weight: 78 kg

DRUGS (8)
  1. LOSARTAN POTASSIUM. [Concomitant]
     Active Substance: LOSARTAN POTASSIUM
  2. SPIRONOLACTONE. [Suspect]
     Active Substance: SPIRONOLACTONE
     Indication: PERIPHERAL SWELLING
     Route: 048
     Dates: start: 20170615, end: 20170630
  3. ALFACALCIDOL [Concomitant]
     Active Substance: ALFACALCIDOL
  4. ZAPAIN [Concomitant]
     Active Substance: ACETAMINOPHEN\CODEINE PHOSPHATE
  5. ATENOLOL. [Concomitant]
     Active Substance: ATENOLOL
  6. EPLERENONE. [Suspect]
     Active Substance: EPLERENONE
     Indication: PERIPHERAL SWELLING
     Route: 048
     Dates: start: 20170921
  7. INDAPAMIDE. [Suspect]
     Active Substance: INDAPAMIDE
     Indication: PERIPHERAL SWELLING
     Route: 048
     Dates: start: 20170701, end: 20170731
  8. CALCICHEW [Concomitant]
     Active Substance: CALCIUM CARBONATE

REACTIONS (6)
  - Breast pain [Not Recovered/Not Resolved]
  - Abdominal discomfort [Not Recovered/Not Resolved]
  - Burning sensation [Not Recovered/Not Resolved]
  - Muscle spasms [Not Recovered/Not Resolved]
  - Swelling face [Not Recovered/Not Resolved]
  - Photosensitivity reaction [Not Recovered/Not Resolved]
